FAERS Safety Report 24755430 (Version 1)
Quarter: 2024Q4

REPORT INFORMATION
  Report Type: Spontaneous
  Country: US (occurrence: US)
  Receive Date: 20241219
  Receipt Date: 20241219
  Transmission Date: 20250115
  Serious: Yes (Other)
  Sender: INTRA-CELLULAR THERAPIES
  Company Number: US-INTRA-CELLULAR THERAPIES, INC.-2024ICT02018

PATIENT
  Age: 31 Year
  Sex: Female

DRUGS (4)
  1. CAPLYTA [Suspect]
     Active Substance: LUMATEPERONE
     Dosage: 21 MG
     Dates: start: 2024, end: 2024
  2. CAPLYTA [Suspect]
     Active Substance: LUMATEPERONE
     Dosage: 42 MG
     Dates: start: 2024, end: 2024
  3. INVEGA [Concomitant]
     Active Substance: PALIPERIDONE
     Dosage: 12 MG
  4. INVEGA [Concomitant]
     Active Substance: PALIPERIDONE
     Dosage: 6 MG

REACTIONS (2)
  - Hallucination, auditory [Unknown]
  - Delusion [Unknown]

NARRATIVE: CASE EVENT DATE: 20240101
